FAERS Safety Report 9426528 (Version 1)
Quarter: 2013Q3

REPORT INFORMATION
  Report Type: Spontaneous
  Country: US (occurrence: None)
  Receive Date: 20130729
  Receipt Date: 20130729
  Transmission Date: 20140515
  Serious: Yes (Life-Threatening)
  Sender: FDA-Public Use
  Company Number: None

PATIENT
  Age: 55 Year
  Sex: Female

DRUGS (2)
  1. ESCITALOPRAM [Suspect]
     Indication: MAJOR DEPRESSION
     Dosage: 15MS
     Route: 048
     Dates: start: 20130606, end: 20130727
  2. ESCITALOPRAM [Suspect]
     Indication: ANXIETY
     Dosage: 15MS
     Route: 048
     Dates: start: 20130606, end: 20130727

REACTIONS (5)
  - Product substitution issue [None]
  - Depression [None]
  - Anxiety [None]
  - Disturbance in attention [None]
  - Somnolence [None]
